FAERS Safety Report 16665631 (Version 1)
Quarter: 2019Q3

REPORT INFORMATION
  Report Type: Spontaneous
  Country: US (occurrence: US)
  Receive Date: 20190620
  Receipt Date: 20190620
  Transmission Date: 20191004
  Serious: Yes (Death, Other)
  Sender: FDA-Public Use
  Company Number: None

PATIENT
  Age: 58 Year
  Sex: Female
  Weight: 112.49 kg

DRUGS (1)
  1. ALBUTEROL HFA [Suspect]
     Active Substance: ALBUTEROL SULFATE
     Indication: ASTHMA
     Dosage: ?          OTHER FREQUENCY:EVERY 4 HOURS ;?
     Route: 055
     Dates: start: 20190425

REACTIONS (1)
  - Treatment failure [None]

NARRATIVE: CASE EVENT DATE: 20190509
